FAERS Safety Report 7436014-7 (Version None)
Quarter: 2011Q2

REPORT INFORMATION
  Report Type: 
  Country: None (occurrence: None)
  Receive Date: 20110425
  Receipt Date: 20110418
  Transmission Date: 20111010
  Serious: Yes (Other)
  Sender: FDA-Public Use
  Company Number: PHFR2011GB01710

PATIENT
  Sex: Male

DRUGS (6)
  1. VOLTAREN [Suspect]
     Indication: GOUT
     Dosage: 50 MG, PRN
     Route: 048
     Dates: end: 20110406
  2. ASPIRIN [Concomitant]
     Dosage: 75MG
     Route: 048
  3. VOLTAREN [Suspect]
     Indication: PAIN
     Dosage: UNK
     Route: 054
  4. VOLTAROL EMULGEL P [Suspect]
     Dosage: UNK
  5. OMEPRAZOLE [Concomitant]
     Dosage: 20 MG
     Route: 048
  6. TAMSULOSIN [Concomitant]
     Dosage: 400 MG
     Route: 048

REACTIONS (7)
  - BALANCE DISORDER [None]
  - LOSS OF CONSCIOUSNESS [None]
  - VISION BLURRED [None]
  - DYSARTHRIA [None]
  - GASTRIC DISORDER [None]
  - TRANSIENT ISCHAEMIC ATTACK [None]
  - DIARRHOEA [None]
